FAERS Safety Report 8522320-1 (Version None)
Quarter: 2012Q3

REPORT INFORMATION
  Report Type: 
  Country: None (occurrence: None)
  Receive Date: 20120719
  Receipt Date: 20120711
  Transmission Date: 20120928
  Serious: Yes (Hospitalization, Other)
  Sender: FDA-Public Use
  Company Number: US-ELI_LILLY_AND_COMPANY-US201104006648

PATIENT
  Sex: Female

DRUGS (7)
  1. FORTEO [Suspect]
     Dosage: 20 UG, QD
     Route: 065
  2. FORTEO [Suspect]
     Indication: OSTEOPOROSIS
     Dosage: 20 UG, QD
     Route: 065
     Dates: start: 20101001, end: 20101101
  3. FORTEO [Suspect]
     Dosage: 20 UG, QD
     Route: 065
  4. FORTEO [Suspect]
     Dosage: 20 UG, QD
     Route: 065
     Dates: end: 20120627
  5. CELEXA [Concomitant]
  6. FORTEO [Suspect]
     Dosage: 20 UG, QD
     Route: 065
  7. THERAFLU [Concomitant]

REACTIONS (16)
  - MUSCLE SPASMS [None]
  - URINARY TRACT INFECTION [None]
  - SINUS DISORDER [None]
  - NAUSEA [None]
  - BLADDER DISCOMFORT [None]
  - SINUS CONGESTION [None]
  - MALAISE [None]
  - HIP FRACTURE [None]
  - ANAEMIA [None]
  - BACK PAIN [None]
  - INJECTION SITE PAIN [None]
  - DRUG DOSE OMISSION [None]
  - SLEEP DISORDER DUE TO A GENERAL MEDICAL CONDITION [None]
  - PAIN [None]
  - ARTHRALGIA [None]
  - BLOOD SODIUM DECREASED [None]
